FAERS Safety Report 14064961 (Version 2)
Quarter: 2017Q4

REPORT INFORMATION
  Report Type: Spontaneous
  Country: JP (occurrence: JP)
  Receive Date: 20171009
  Receipt Date: 20171107
  Transmission Date: 20180321
  Serious: Yes (Other)
  Sender: FDA-Public Use
  Company Number: GB-SA-2017SA192081

PATIENT
  Age: 44 Year
  Sex: Female

DRUGS (8)
  1. OXALIPLATIN. [Suspect]
     Active Substance: OXALIPLATIN
     Indication: RECTAL CANCER METASTATIC
     Route: 042
  2. FOLINIC ACID [Suspect]
     Active Substance: LEUCOVORIN
     Indication: RECTAL CANCER METASTATIC
     Route: 042
  3. IRINOTECAN [Suspect]
     Active Substance: IRINOTECAN
     Indication: RECTAL CANCER METASTATIC
     Route: 042
  4. BEVACIZUMAB. [Suspect]
     Active Substance: BEVACIZUMAB
     Indication: RECTAL CANCER METASTATIC
     Route: 042
  5. OXALIPLATIN. [Suspect]
     Active Substance: OXALIPLATIN
     Indication: RECTAL CANCER METASTATIC
     Route: 042
  6. IRINOTECAN [Suspect]
     Active Substance: IRINOTECAN
     Indication: RECTAL CANCER METASTATIC
     Route: 042
  7. FLUOROURACIL. [Suspect]
     Active Substance: FLUOROURACIL
     Indication: RECTAL CANCER METASTATIC
     Route: 042
  8. FLUOROURACIL. [Suspect]
     Active Substance: FLUOROURACIL
     Indication: RECTAL CANCER METASTATIC
     Route: 042

REACTIONS (7)
  - Malaise [Not Recovered/Not Resolved]
  - Neuropathy peripheral [Recovering/Resolving]
  - Alopecia [Recovering/Resolving]
  - Tremor [Not Recovered/Not Resolved]
  - Dysgeusia [Recovering/Resolving]
  - Neuralgia [Not Recovered/Not Resolved]
  - Anaemia [Not Recovered/Not Resolved]
